FAERS Safety Report 4787102-5 (Version None)
Quarter: 2005Q3

REPORT INFORMATION
  Report Type: 
  Country: None (occurrence: None)
  Receive Date: 20050930
  Receipt Date: 20050107
  Transmission Date: 20060218
  Serious: Yes (Life-Threatening)
  Sender: FDA-Public Use
  Company Number: 2005FR-00297

PATIENT
  Age: 68 Year
  Sex: Male

DRUGS (7)
  1. AVANDAMET [Suspect]
     Indication: DIABETES MELLITUS NON-INSULIN-DEPENDENT
     Dosage: 2/500 MG 2 TABS BD, ORAL
     Route: 048
  2. VALPROATE SODIUM [Concomitant]
  3. SIMVASTATIIN [Concomitant]
  4. GLICLAZIDE [Concomitant]
  5. ENALAPRIL [Concomitant]
  6. DIPYRIDAMOLE [Concomitant]
  7. LANSOPRAZOLE [Concomitant]

REACTIONS (2)
  - CONVULSION [None]
  - MYOCARDIAL INFARCTION [None]
